FAERS Safety Report 4972551-2 (Version None)
Quarter: 2006Q1

REPORT INFORMATION
  Report Type: 
  Country: None (occurrence: None)
  Receive Date: 20060216
  Receipt Date: 20060112
  Transmission Date: 20060701
  Serious: No
  Sender: FDA-Public Use
  Company Number: TPA2006A00064

PATIENT
  Age: 50 Year
  Sex: Female
  Weight: 93.8946 kg

DRUGS (7)
  1. ROZEREM [Suspect]
     Indication: INSOMNIA
     Dosage: 8 MG, HS, PER ORAL
     Route: 048
     Dates: start: 20060105, end: 20060108
  2. TIAZAC [Concomitant]
  3. DIOVAN [Concomitant]
  4. PLAVIX [Concomitant]
  5. CYMBALTA (ARICLAIM) [Concomitant]
  6. SYNTHROID [Concomitant]
  7. AMBIEN [Concomitant]

REACTIONS (4)
  - DRUG INEFFECTIVE [None]
  - DYSPNOEA [None]
  - FEELING JITTERY [None]
  - INSOMNIA [None]
